FAERS Safety Report 5195215-1 (Version None)
Quarter: 2006Q4

REPORT INFORMATION
  Report Type: 
  Country: None (occurrence: None)
  Receive Date: 20061229
  Receipt Date: 20061024
  Transmission Date: 20070319
  Serious: Yes (Disabling, Other)
  Sender: FDA-Public Use
  Company Number: AU-PFIZER INC-2006131877

PATIENT
  Sex: Male
  Weight: 103 kg

DRUGS (1)
  1. LIPITOR [Suspect]
     Dates: start: 20060721, end: 20060820

REACTIONS (4)
  - BLOOD CREATINE PHOSPHOKINASE INCREASED [None]
  - GAIT DISTURBANCE [None]
  - MOVEMENT DISORDER [None]
  - MYALGIA [None]
